FAERS Safety Report 22636664 (Version 3)
Quarter: 2023Q4

REPORT INFORMATION
  Report Type: Spontaneous
  Country: US (occurrence: US)
  Receive Date: 20230623
  Receipt Date: 20231013
  Transmission Date: 20240109
  Serious: Yes (Disabling, Other)
  Sender: FDA-Public Use
  Company Number: US-TEVA-2023-US-2900770

PATIENT
  Age: 65 Year
  Sex: Female
  Weight: 64.7 kg

DRUGS (10)
  1. CARBOPLATIN [Suspect]
     Active Substance: CARBOPLATIN
     Indication: Breast cancer female
     Dosage: NUMBER OF CYCLES:05 AUC 6, EVERY 3 WEEKS DOSE:C1-C2: 650 MG, C3-C5:640 MG
     Route: 042
     Dates: start: 20200408, end: 20200701
  2. HERCEPTIN [Suspect]
     Active Substance: TRASTUZUMAB
     Indication: Breast cancer female
     Dosage: NUMBER OF CYCLES:05, 8 MG/KG DOSE:C1-C2: 399 MG, C3-C5:378 MG
     Route: 042
     Dates: start: 20200408, end: 20200701
  3. TAXOTERE [Suspect]
     Active Substance: DOCETAXEL
     Indication: Breast cancer female
     Dosage: 6.1905 MILLIGRAM DAILY; NUMBER OF CYCLES:05, 75 MG/M2, EVERY 3 WEEKS
     Route: 042
     Dates: start: 20200408, end: 20200701
  4. DOCETAXEL [Suspect]
     Active Substance: DOCETAXEL
     Indication: Breast cancer female
     Dosage: 6.1905 MILLIGRAM DAILY; NUMBER OF CYCLES:05, 75 MG/M2, EVERY 3 WEEKS
     Route: 042
     Dates: start: 20200408, end: 20200701
  5. NEULASTA [Concomitant]
     Active Substance: PEGFILGRASTIM
     Indication: Product used for unknown indication
     Dosage: 21 DAY
     Route: 058
     Dates: start: 20200408, end: 20200701
  6. GABAPENTIN [Concomitant]
     Active Substance: GABAPENTIN
     Indication: Product used for unknown indication
     Route: 065
     Dates: start: 1990
  7. MELOXICAM [Concomitant]
     Active Substance: MELOXICAM
     Indication: Product used for unknown indication
     Route: 065
     Dates: start: 1990
  8. DALTREX [Concomitant]
     Indication: Product used for unknown indication
     Route: 065
     Dates: start: 1990
  9. ALBUTEROL [Concomitant]
     Active Substance: ALBUTEROL
     Indication: Product used for unknown indication
     Route: 065
     Dates: start: 1990
  10. DULOXETINE [Concomitant]
     Active Substance: DULOXETINE
     Indication: Product used for unknown indication
     Route: 065
     Dates: start: 1990

REACTIONS (22)
  - Lacrimation increased [Not Recovered/Not Resolved]
  - Lacrimal structure injury [Unknown]
  - Neuropathy peripheral [Unknown]
  - Dacryostenosis acquired [Not Recovered/Not Resolved]
  - Vision blurred [Not Recovered/Not Resolved]
  - Eye irritation [Not Recovered/Not Resolved]
  - Foreign body sensation in eyes [Not Recovered/Not Resolved]
  - Eye pruritus [Not Recovered/Not Resolved]
  - Peripheral swelling [Not Recovered/Not Resolved]
  - Joint swelling [Not Recovered/Not Resolved]
  - Fatigue [Not Recovered/Not Resolved]
  - Skin lesion [Not Recovered/Not Resolved]
  - Dermatitis [Not Recovered/Not Resolved]
  - Erythema [Not Recovered/Not Resolved]
  - Constipation [Unknown]
  - Diarrhoea [Unknown]
  - Rhinorrhoea [Unknown]
  - Muscular weakness [Unknown]
  - Rash [Recovering/Resolving]
  - Nausea [Recovering/Resolving]
  - Vomiting [Recovering/Resolving]
  - Stomatitis [Recovered/Resolved]

NARRATIVE: CASE EVENT DATE: 20200401
